FAERS Safety Report 13027241 (Version 1)
Quarter: 2016Q4

REPORT INFORMATION
  Report Type: Spontaneous
  Country: NL (occurrence: NL)
  Receive Date: 20161214
  Receipt Date: 20161214
  Transmission Date: 20170207
  Serious: Yes (Hospitalization)
  Sender: FDA-Public Use
  Company Number: NL-TEVA-718921ACC

PATIENT
  Age: 63 Year
  Sex: Female
  Weight: 54 kg

DRUGS (5)
  1. THYRAX DUOTAB TABLET 0,100MG [Concomitant]
     Active Substance: LEVOTHYROXINE
     Dosage: 1 TIMES DAILY 112.5 MG
     Route: 048
  2. CARBOPLATINE INFUUS [Concomitant]
     Active Substance: CARBOPLATIN
     Dosage: 2 CYCLES (COMBINATION WITH PACLITAXEL (POSSIBLE TEVA))
     Route: 042
     Dates: start: 20160809, end: 20160926
  3. PREDNISON TABLET 2,5MG [Concomitant]
     Dosage: 7.5 MILLIGRAM DAILY; 1 TIME PER DAY 3 PIECE(S)
     Route: 048
  4. PACLITAXEL INFUUS [Suspect]
     Active Substance: PACLITAXEL
     Indication: OVARIAN CANCER
     Dosage: RECEIVED 2 CYCLES
     Route: 042
     Dates: start: 20160809, end: 20160926
  5. ESOMEPRAZOL TABLET MSR 40MG [Concomitant]
     Dosage: 40 MILLIGRAM DAILY; 1 TIME PER DAY 3 PIECE(S)
     Route: 048

REACTIONS (4)
  - Vertigo [Not Recovered/Not Resolved]
  - Vomiting [Not Recovered/Not Resolved]
  - Loss of proprioception [Not Recovered/Not Resolved]
  - Balance disorder [Not Recovered/Not Resolved]

NARRATIVE: CASE EVENT DATE: 20160901
